FAERS Safety Report 9063900 (Version 1)
Quarter: 2013Q1

REPORT INFORMATION
  Report Type: Report from Study
  Country: US (occurrence: US)
  Receive Date: 20130130
  Receipt Date: 20130130
  Transmission Date: 20140127
  Serious: No
  Sender: FDA-Public Use
  Company Number: US-ABBOTT-12P-163-0950075-00

PATIENT
  Age: 27 Year
  Sex: Female

DRUGS (5)
  1. HUMIRA 40 MG/0.8 ML PEN [Suspect]
     Indication: CROHN^S DISEASE
     Dates: start: 20120625
  2. HUMIRA 40 MG/0.8 ML PEN [Suspect]
     Dates: start: 20120710
  3. LIALDA [Concomitant]
     Indication: CROHN^S DISEASE
     Dosage: 4 PILLS DAILY
  4. WELLBUTRIN [Concomitant]
     Indication: POSTPARTUM DEPRESSION
     Dosage: DAILY
  5. NYSTATIN W/TRIAMCINOLONE [Concomitant]
     Indication: SKIN IRRITATION
     Dosage: PRN

REACTIONS (5)
  - Inappropriate schedule of drug administration [Recovering/Resolving]
  - Injection site haemorrhage [Recovered/Resolved]
  - Injection site pain [Recovered/Resolved]
  - Injection site pain [Recovered/Resolved]
  - Pain [Recovering/Resolving]
